FAERS Safety Report 8956544 (Version 1)
Quarter: 2012Q4

REPORT INFORMATION
  Report Type: 
  Country: US (occurrence: US)
  Receive Date: 20121210
  Receipt Date: 20121210
  Transmission Date: 20130627
  Serious: Yes (Hospitalization)
  Sender: FDA-Public Use
  Company Number: US-JNJFOC-20121201131

PATIENT
  Age: 68 Year
  Sex: Female

DRUGS (4)
  1. REMICADE [Suspect]
     Indication: OSTEOARTHRITIS
     Route: 042
     Dates: start: 2012
  2. REMICADE [Suspect]
     Indication: OSTEOARTHRITIS
     Route: 042
     Dates: start: 20121125
  3. REMICADE [Suspect]
     Indication: JOINT SWELLING
     Route: 042
     Dates: start: 20121125
  4. REMICADE [Suspect]
     Indication: JOINT SWELLING
     Route: 042
     Dates: start: 2012

REACTIONS (6)
  - Myocardial infarction [Unknown]
  - Urosepsis [Recovering/Resolving]
  - Cardiac failure congestive [Unknown]
  - Liver function test abnormal [Unknown]
  - Tricuspid valve disease [Unknown]
  - Hepatic steatosis [Unknown]
